FAERS Safety Report 8957020 (Version 1)
Quarter: 2012Q4

REPORT INFORMATION
  Report Type: Spontaneous
  Country: US (occurrence: None)
  Receive Date: 20121205
  Receipt Date: 20121205
  Transmission Date: 20130627
  Serious: Yes (Hospitalization)
  Sender: FDA-Public Use
  Company Number: None

PATIENT
  Age: 34 Year
  Sex: Female
  Weight: 57.61 kg

DRUGS (1)
  1. MIRENA IUD [Suspect]

REACTIONS (20)
  - Migraine [None]
  - Abdominal distension [None]
  - Discomfort [None]
  - Post procedural haemorrhage [None]
  - Complication of device removal [None]
  - Dizziness [None]
  - Balance disorder [None]
  - Nausea [None]
  - Fatigue [None]
  - Headache [None]
  - Anxiety [None]
  - Panic attack [None]
  - Hot flush [None]
  - Night sweats [None]
  - Palpitations [None]
  - Menopausal symptoms [None]
  - Pain [None]
  - Dyspnoea [None]
  - Mixed connective tissue disease [None]
  - Product quality issue [None]
